FAERS Safety Report 18023985 (Version 2)
Quarter: 2020Q3

REPORT INFORMATION
  Report Type: Report from Study
  Country: JP (occurrence: JP)
  Receive Date: 20200714
  Receipt Date: 20200717
  Transmission Date: 20201103
  Serious: Yes (Hospitalization)
  Sender: FDA-Public Use
  Company Number: JP-VIELABIO-VIE-2020-JP-000001

PATIENT
  Age: 51 Year
  Sex: Female
  Weight: 75 kg

DRUGS (26)
  1. EDIROL [Concomitant]
     Active Substance: ELDECALCITOL
     Indication: OSTEOPOROSIS PROPHYLAXIS
     Dosage: UNK
     Route: 048
     Dates: start: 2013
  2. MOHRUS [Concomitant]
     Active Substance: KETOPROFEN
     Indication: PAIN
     Dosage: UNK
     Route: 061
     Dates: start: 201512
  3. BESOFTEN [Concomitant]
     Active Substance: PENTOSAN POLYSULFATE SODIUM
     Indication: ECZEMA ASTEATOTIC
     Dosage: UNK
     Route: 061
     Dates: start: 20160907
  4. ALMETA [Concomitant]
     Active Substance: ALCLOMETASONE DIPROPIONATE
     Indication: ECZEMA ASTEATOTIC
     Dosage: UNK
     Route: 061
     Dates: start: 20160923
  5. UREPEARL [Concomitant]
     Active Substance: UREA
     Indication: ECZEMA ASTEATOTIC
     Dosage: 10 %, UNK
     Route: 061
     Dates: start: 20160923
  6. HYALEIN MINI [Concomitant]
     Active Substance: HYALURONATE SODIUM
     Indication: ASTHENOPIA
     Dosage: UNK
     Route: 061
     Dates: start: 20161014
  7. ZINC OXIDE. [Concomitant]
     Active Substance: ZINC OXIDE
     Indication: ECZEMA ASTEATOTIC
     Dosage: UNK
     Route: 061
     Dates: start: 20170210, end: 20190416
  8. CYMBALTA [Concomitant]
     Active Substance: DULOXETINE HYDROCHLORIDE
     Indication: PAIN
     Dosage: UNK
     Route: 048
     Dates: start: 2015, end: 20181031
  9. PROPETO [Concomitant]
     Active Substance: PETROLATUM
     Indication: ECZEMA ASTEATOTIC
     Dosage: UNK
     Route: 061
     Dates: start: 20160914
  10. MEDI?551 [Suspect]
     Active Substance: INEBILIZUMAB
     Dosage: 300 MG, Q26W
     Route: 042
     Dates: start: 20170712
  11. SANCOBA [Concomitant]
     Active Substance: CYANOCOBALAMIN
     Indication: ASTHENOPIA
     Dosage: 0.02 %, UNK
     Route: 061
     Dates: start: 20161014
  12. LIORESAL [Concomitant]
     Active Substance: BACLOFEN
     Indication: MUSCLE SPASTICITY
     Dosage: UNK
     Route: 048
     Dates: start: 2015
  13. NIZORAL [Concomitant]
     Active Substance: KETOCONAZOLE
     Indication: ECZEMA ASTEATOTIC
     Dosage: 2 %, UNK
     Route: 061
     Dates: start: 20160907
  14. VESICARE [Concomitant]
     Active Substance: SOLIFENACIN SUCCINATE
     Indication: HYPERTONIC BLADDER
     Dosage: UNK
     Route: 048
     Dates: start: 20161006
  15. EURAX [Concomitant]
     Active Substance: CROTAMITON
     Indication: ECZEMA ASTEATOTIC
     Dosage: 10 %, UNK
     Route: 061
     Dates: start: 20160708
  16. HIRUDOID [Concomitant]
     Active Substance: GLYCOSAMINOGLYCANS
     Indication: ECZEMA ASTEATOTIC
     Dosage: UNK
     Route: 061
     Dates: start: 20161014
  17. CANAGLU [Concomitant]
     Active Substance: CANAGLIFLOZIN
     Indication: DIABETES MELLITUS
     Dosage: UNK
     Route: 048
     Dates: start: 20170210, end: 20191001
  18. MAGMITT [Concomitant]
     Active Substance: MAGNESIUM OXIDE
     Indication: CONSTIPATION
     Dosage: UNK
     Route: 048
     Dates: start: 20161208, end: 20170816
  19. MEDI?551 [Suspect]
     Active Substance: INEBILIZUMAB
     Indication: NEUROMYELITIS OPTICA SPECTRUM DISORDER
     Dosage: 300 MG, Q26W
     Route: 042
     Dates: start: 20160713, end: 20160713
  20. REBAMIPIDE [Concomitant]
     Active Substance: REBAMIPIDE
     Indication: GASTRITIS EROSIVE
     Dosage: UNK
     Route: 048
     Dates: start: 2014, end: 20190716
  21. ANTEBATE [Concomitant]
     Active Substance: BETAMETHASONE DIPROPIONATE
     Indication: DRY SKIN
     Dosage: 0.05 %, UNK
     Route: 061
     Dates: start: 20160914
  22. JANUVIA [Concomitant]
     Active Substance: SITAGLIPTIN PHOSPHATE
     Indication: DIABETES MELLITUS
     Dosage: UNK
     Route: 048
     Dates: start: 20170113, end: 20170817
  23. MEDI?551 [Suspect]
     Active Substance: INEBILIZUMAB
     Dosage: 300 MG, Q26W
     Route: 042
     Dates: start: 20170113, end: 20170113
  24. VOALLA [Concomitant]
     Indication: ECZEMA ASTEATOTIC
     Dosage: UNK
     Route: 061
     Dates: start: 20160914
  25. VOGLIBOSE [Concomitant]
     Active Substance: VOGLIBOSE
     Indication: DIABETES MELLITUS
     Dosage: UNK
     Route: 048
     Dates: start: 20170210
  26. LYRICA [Concomitant]
     Active Substance: PREGABALIN
     Indication: PAIN
     Dosage: UNK
     Route: 048
     Dates: start: 20170309

REACTIONS (1)
  - Herpes zoster [Recovered/Resolved]

NARRATIVE: CASE EVENT DATE: 20170912
